FAERS Safety Report 13545956 (Version 1)
Quarter: 2017Q2

REPORT INFORMATION
  Report Type: Report from Study
  Country: FR (occurrence: FR)
  Receive Date: 20170515
  Receipt Date: 20170515
  Transmission Date: 20170830
  Serious: Yes (Hospitalization, Disabling, Other)
  Sender: FDA-Public Use
  Company Number: FR-INCYTE CORPORATION-2017IN003803

PATIENT

DRUGS (2)
  1. JAKAVI [Suspect]
     Active Substance: RUXOLITINIB
     Dosage: 10 MG, BID
     Route: 048
     Dates: start: 20161130
  2. JAKAVI [Suspect]
     Active Substance: RUXOLITINIB
     Indication: MYELOFIBROSIS
     Dosage: 20 MG, BID
     Route: 048
     Dates: start: 20160115, end: 20160719

REACTIONS (11)
  - Malnutrition [Recovered/Resolved]
  - Aspartate aminotransferase increased [Unknown]
  - Myeloblast present [Unknown]
  - Haemoglobin decreased [Unknown]
  - Alanine aminotransferase increased [Unknown]
  - General physical health deterioration [Recovered/Resolved]
  - Gamma-glutamyltransferase increased [Unknown]
  - Autonomic nervous system imbalance [Recovered/Resolved]
  - Platelet count decreased [Unknown]
  - Myelofibrosis [Not Recovered/Not Resolved]
  - Acute leukaemia [Unknown]

NARRATIVE: CASE EVENT DATE: 20160719
